FAERS Safety Report 8415582-2 (Version None)
Quarter: 2012Q2

REPORT INFORMATION
  Report Type: 
  Country: None (occurrence: None)
  Receive Date: 20120606
  Receipt Date: 20120530
  Transmission Date: 20120825
  Serious: Yes (Other)
  Sender: FDA-Public Use
  Company Number: JP-JNJFOC-20120519431

PATIENT
  Age: 82 Year
  Sex: Male

DRUGS (1)
  1. TRAMADOL HYDROCHLORIDE AND ACETAMINOPHEN [Suspect]
     Indication: PAIN
     Dosage: 2 DF 1 PER 1 DAY/TABLET
     Route: 048
     Dates: start: 20120501, end: 20120523

REACTIONS (1)
  - PULMONARY FIBROSIS [None]
